FAERS Safety Report 4759729-8 (Version None)
Quarter: 2005Q3

REPORT INFORMATION
  Report Type: 
  Country: None (occurrence: None)
  Receive Date: 20050826
  Receipt Date: 20050606
  Transmission Date: 20060218
  Serious: No
  Sender: FDA-Public Use
  Company Number: WAES 0506USA01213

PATIENT
  Sex: Male

DRUGS (2)
  1. ZETIA [Suspect]
     Indication: BLOOD CHOLESTEROL INCREASED
     Dosage: 10 MG/DAILY/PO
     Route: 048
     Dates: start: 20050101
  2. LIPITOR [Concomitant]

REACTIONS (5)
  - BLISTER [None]
  - EYE PRURITUS [None]
  - INFLUENZA LIKE ILLNESS [None]
  - MYALGIA [None]
  - OCULAR HYPERAEMIA [None]
